FAERS Safety Report 13755097 (Version 2)
Quarter: 2017Q3

REPORT INFORMATION
  Report Type: Spontaneous
  Country: IT (occurrence: IT)
  Receive Date: 20170714
  Receipt Date: 20170724
  Transmission Date: 20171127
  Serious: Yes (Other)
  Sender: FDA-Public Use
  Company Number: IT-PFIZER INC-2017296981

PATIENT
  Age: 25 Year
  Sex: Female

DRUGS (3)
  1. ALPRAZOLAM. [Suspect]
     Active Substance: ALPRAZOLAM
     Dosage: 1 DF, TOTAL
     Route: 048
     Dates: start: 20170402
  2. DEPAKIN [Concomitant]
     Active Substance: VALPROATE SODIUM
     Dosage: UNK
  3. CIPRALEX [Concomitant]
     Active Substance: ESCITALOPRAM OXALATE
     Dosage: UNK

REACTIONS (4)
  - Confusional state [Recovering/Resolving]
  - Intentional overdose [Recovering/Resolving]
  - Dizziness [Recovering/Resolving]
  - Drug abuse [Recovering/Resolving]

NARRATIVE: CASE EVENT DATE: 20170402
